FAERS Safety Report 7368475-6 (Version None)
Quarter: 2011Q1

REPORT INFORMATION
  Report Type: 
  Country: None (occurrence: None)
  Receive Date: 20110317
  Receipt Date: 20110317
  Transmission Date: 20110831
  Serious: Yes (Hospitalization)
  Sender: FDA-Public Use
  Company Number: None

PATIENT
  Age: 27 Year
  Sex: Male
  Weight: 99 kg

DRUGS (1)
  1. DIVALPROEX [Suspect]
     Indication: AFFECTIVE DISORDER
     Dates: start: 20110208, end: 20110209

REACTIONS (6)
  - VOMITING [None]
  - SMALL INTESTINAL OBSTRUCTION [None]
  - ILEUS [None]
  - ABDOMINAL PAIN [None]
  - NAUSEA [None]
  - FLUSHING [None]
